FAERS Safety Report 7268741-9 (Version None)
Quarter: 2011Q1

REPORT INFORMATION
  Report Type: 
  Country: None (occurrence: None)
  Receive Date: 20110201
  Receipt Date: 20110127
  Transmission Date: 20110831
  Serious: Yes (Hospitalization)
  Sender: FDA-Public Use
  Company Number: FR-PFIZER INC-FR-WYE-G06681410

PATIENT
  Age: 64 Year
  Sex: Female
  Weight: 67 kg

DRUGS (7)
  1. DAUNORUBICIN [Suspect]
     Indication: ACUTE MYELOID LEUKAEMIA
     Dosage: 100 MG TOTAL DAILY
     Route: 065
     Dates: start: 20100127, end: 20100129
  2. CYTARABINE [Suspect]
     Indication: ACUTE MYELOID LEUKAEMIA
     Dosage: 336 MG TOTAL DAILY
     Route: 065
     Dates: start: 20100127, end: 20100201
  3. TENORMIN [Concomitant]
     Dosage: 100 MG, 1X/DAY
     Route: 048
  4. ISOPRINOSINE [Concomitant]
     Dosage: UNK
     Route: 048
  5. GEMTUZUMAB OZOGAMICIN [Suspect]
     Indication: ACUTE MYELOID LEUKAEMIA
     Dosage: 5 MG TOTAL DAILY
     Route: 042
     Dates: start: 20100127, end: 20100130
  6. HEPARIN SODIUM [Concomitant]
     Dosage: UNK
     Route: 042
     Dates: start: 20100128, end: 20100210
  7. ELISOR [Concomitant]
     Dosage: 1 DF, 1X/DAY
     Route: 048

REACTIONS (1)
  - DEEP VEIN THROMBOSIS [None]
